FAERS Safety Report 6468788-6 (Version None)
Quarter: 2009Q4

REPORT INFORMATION
  Report Type: 
  Country: None (occurrence: None)
  Receive Date: 20091203
  Receipt Date: 20090414
  Transmission Date: 20100525
  Serious: Yes (Hospitalization)
  Sender: FDA-Public Use
  Company Number: US-ELI_LILLY_AND_COMPANY-US93112173A

PATIENT

DRUGS (1)
  1. PROZAC [Suspect]
     Indication: DEPRESSION
     Dosage: 20 MG, DAILY (1/D)
     Route: 065

REACTIONS (17)
  - BODY TEMPERATURE INCREASED [None]
  - CONJUNCTIVAL DISORDER [None]
  - CRYING [None]
  - CYANOSIS [None]
  - EYE MOVEMENT DISORDER [None]
  - HYPERREFLEXIA [None]
  - HYPERTONIA [None]
  - HYPOGLYCAEMIA [None]
  - HYPOREFLEXIA [None]
  - IRRITABILITY [None]
  - NASAL CONGESTION [None]
  - OPISTHOTONUS [None]
  - RESPIRATION ABNORMAL [None]
  - TACHYPNOEA [None]
  - TEMPERATURE REGULATION DISORDER [None]
  - TREMOR [None]
  - VOMITING [None]
